FAERS Safety Report 12856572 (Version 4)
Quarter: 2016Q4

REPORT INFORMATION
  Report Type: Spontaneous
  Country: TW (occurrence: TW)
  Receive Date: 20161018
  Receipt Date: 20161227
  Transmission Date: 20170207
  Serious: Yes (Death)
  Sender: FDA-Public Use
  Company Number: PHHY2016TW142716

PATIENT
  Age: 35 Year
  Sex: Male

DRUGS (2)
  1. METHOTREXATE. [Suspect]
     Active Substance: METHOTREXATE
     Indication: STEM CELL TRANSPLANT
     Route: 065
  2. CICLOSPORIN [Suspect]
     Active Substance: CYCLOSPORINE
     Indication: STEM CELL TRANSPLANT
     Route: 065

REACTIONS (9)
  - Hypoxia [Fatal]
  - Respiratory failure [Fatal]
  - Inflammation [Fatal]
  - Infection [Unknown]
  - Therapeutic response decreased [Unknown]
  - Cough [Fatal]
  - Interstitial lung disease [Fatal]
  - Lung infiltration [Fatal]
  - Dyspnoea [Fatal]
